FAERS Safety Report 7431716-0 (Version None)
Quarter: 2011Q2

REPORT INFORMATION
  Report Type: 
  Country: None (occurrence: None)
  Receive Date: 20110422
  Receipt Date: 20110414
  Transmission Date: 20111010
  Serious: Yes (Other)
  Sender: FDA-Public Use
  Company Number: JP-BIOGENIDEC-2011BI000889

PATIENT
  Age: 8 Year
  Sex: Female

DRUGS (3)
  1. AVONEX [Suspect]
     Indication: RELAPSING-REMITTING MULTIPLE SCLEROSIS
     Route: 030
     Dates: start: 20081114, end: 20081114
  2. AVONEX [Suspect]
  3. AVONEX [Suspect]
     Route: 030
     Dates: start: 20100824

REACTIONS (1)
  - HEPATIC FUNCTION ABNORMAL [None]
